FAERS Safety Report 11099185 (Version 2)
Quarter: 2015Q2

REPORT INFORMATION
  Report Type: Spontaneous
  Country: US (occurrence: None)
  Receive Date: 20150506
  Receipt Date: 20150506
  Transmission Date: 20150821
  Serious: Yes (Other)
  Sender: FDA-Public Use
  Company Number: ADR-2014-01134

PATIENT
  Age: 63 Year
  Sex: Male

DRUGS (7)
  1. TAMSULOSIN [Suspect]
     Active Substance: TAMSULOSIN
  2. BACLOFEN 500 MCG/ML [Suspect]
     Active Substance: BACLOFEN
     Indication: MUSCLE SPASTICITY
  3. BACTRIM DS [Suspect]
     Active Substance: SULFAMETHOXAZOLE\TRIMETHOPRIM
  4. PROSCAR [Suspect]
     Active Substance: FINASTERIDE
  5. MYRBETRIQ [Suspect]
     Active Substance: MIRABEGRON
  6. ORAL BACLOFEN [Suspect]
     Active Substance: BACLOFEN
     Indication: MUSCLE SPASTICITY
  7. DEXILANT [Suspect]
     Active Substance: DEXLANSOPRAZOLE

REACTIONS (4)
  - Infusion site mass [None]
  - Hypoaesthesia [None]
  - Osteomyelitis [None]
  - Movement disorder [None]

NARRATIVE: CASE EVENT DATE: 20140616
